FAERS Safety Report 4997176-4 (Version None)
Quarter: 2006Q2

REPORT INFORMATION
  Report Type: 
  Country: None (occurrence: None)
  Receive Date: 20060505
  Receipt Date: 20060505
  Transmission Date: 20061013
  Serious: Yes (Hospitalization)
  Sender: FDA-Public Use
  Company Number: None

PATIENT
  Sex: Male

DRUGS (5)
  1. TOPROL-XL [Suspect]
     Indication: CARDIAC FAILURE
     Dosage: 200 MG DAILY PO
     Route: 048
     Dates: start: 20060228, end: 20060302
  2. CARVEDILOL [Concomitant]
  3. FUROSEMIDE [Concomitant]
  4. LISINOPRIL [Concomitant]
  5. TERAZOSIN HCL [Concomitant]

REACTIONS (2)
  - CHEST PAIN [None]
  - DYSPNOEA [None]
